FAERS Safety Report 7587326-8 (Version None)
Quarter: 2011Q3

REPORT INFORMATION
  Report Type: 
  Country: None (occurrence: None)
  Receive Date: 20110701
  Receipt Date: 20110622
  Transmission Date: 20111222
  Serious: Yes (Hospitalization)
  Sender: FDA-Public Use
  Company Number: JP-ASTRAZENECA-2011SE36584

PATIENT
  Age: 21 Year
  Sex: Male

DRUGS (4)
  1. CLARITHROMYCIN [Suspect]
     Dosage: DOSE UNKNOWN
     Route: 048
  2. SINGULAIR [Concomitant]
     Dosage: DOSE UNKNOWN
     Route: 048
  3. SYMBICORT [Suspect]
     Dosage: DOSE UNKNOWN
     Route: 055
  4. MUCOSOLATE [Concomitant]
     Dosage: DOSE UNKNOWN
     Route: 048

REACTIONS (1)
  - BLOOD CREATINE PHOSPHOKINASE INCREASED [None]
